FAERS Safety Report 7632397-3 (Version None)
Quarter: 2011Q3

REPORT INFORMATION
  Report Type: 
  Country: None (occurrence: None)
  Receive Date: 20110725
  Receipt Date: 20100823
  Transmission Date: 20111222
  Serious: No
  Sender: FDA-Public Use
  Company Number: US-BRISTOL-MYERS SQUIBB COMPANY-15251234

PATIENT
  Age: 57 Year
  Sex: Female
  Weight: 107 kg

DRUGS (7)
  1. ATENOLOL [Concomitant]
  2. LEVOTHYROXINE SODIUM [Concomitant]
  3. COUMADIN [Suspect]
  4. PROTONIX [Concomitant]
  5. SIMVASTATIN [Concomitant]
  6. ALPRAZOLAM [Concomitant]
  7. METOPROLOL TARTRATE [Concomitant]

REACTIONS (1)
  - FATIGUE [None]
